FAERS Safety Report 21664693 (Version 1)
Quarter: 2022Q4

REPORT INFORMATION
  Report Type: Spontaneous
  Country: US (occurrence: US)
  Receive Date: 20221130
  Receipt Date: 20221130
  Transmission Date: 20230113
  Serious: Yes (Other)
  Sender: FDA-Public Use
  Company Number: US-PFIZER INC-PV202200112959

PATIENT
  Age: 55 Year
  Sex: Female

DRUGS (1)
  1. SUTENT [Suspect]
     Active Substance: SUNITINIB MALATE
     Indication: Malignant neoplasm of islets of Langerhans
     Dosage: 12.5 MG, CYCLIC (TAKE 1 CAPSULE (12.5MG) BY MOUTH DAILY FOR 28 DAYS)
     Route: 048

REACTIONS (1)
  - Myelosuppression [Unknown]
